FAERS Safety Report 8114637-X (Version None)
Quarter: 2012Q1

REPORT INFORMATION
  Report Type: 
  Country: None (occurrence: None)
  Receive Date: 20120206
  Receipt Date: 20120201
  Transmission Date: 20120608
  Serious: Yes (Other)
  Sender: FDA-Public Use
  Company Number: US-PFIZER INC-2012028267

PATIENT
  Sex: Female
  Weight: 57.143 kg

DRUGS (2)
  1. PRISTIQ [Suspect]
     Indication: ANXIETY
     Dosage: 50 MG, 1X/DAY
     Route: 048
     Dates: start: 20110901
  2. PRISTIQ [Suspect]
     Indication: DEPRESSION

REACTIONS (1)
  - BREAST CANCER [None]
